FAERS Safety Report 25286469 (Version 1)
Quarter: 2025Q2

REPORT INFORMATION
  Report Type: Other
  Country: CN (occurrence: CN)
  Receive Date: 20250509
  Receipt Date: 20250509
  Transmission Date: 20250717
  Serious: Yes (Hospitalization, Other)
  Sender: ANI
  Company Number: CN-ANIPHARMA-022649

PATIENT
  Age: 27 Year
  Sex: Female

DRUGS (10)
  1. CYCLOPHOSPHAMIDE [Suspect]
     Active Substance: CYCLOPHOSPHAMIDE
     Indication: Prophylaxis against graft versus host disease
  2. CYTARABINE [Concomitant]
     Active Substance: CYTARABINE
     Indication: Prophylaxis against graft versus host disease
  3. Mitoxantrone liposomal [Concomitant]
     Indication: Prophylaxis against graft versus host disease
  4. SEMUSTINE [Concomitant]
     Active Substance: SEMUSTINE
     Indication: Prophylaxis against graft versus host disease
  5. METHYLPREDNISOLONE [Concomitant]
     Active Substance: METHYLPREDNISOLONE
     Indication: Graft versus host disease
  6. VITAMIN B COMPLEX [Concomitant]
     Active Substance: CYANOCOBALAMIN\DEXPANTHENOL\NIACINAMIDE\PYRIDOXINE HYDROCHLORIDE\RIBOFLAVIN 5^-PHOSPHATE SODIUM\THIA
     Indication: Wernicke^s encephalopathy
  7. Mitoxantrone liposomal [Concomitant]
     Indication: Anaplastic large cell lymphoma T- and null-cell types
  8. CYTARABINE [Concomitant]
     Active Substance: CYTARABINE
     Indication: Anaplastic large cell lymphoma T- and null-cell types
  9. CYCLOPHOSPHAMIDE [Suspect]
     Active Substance: CYCLOPHOSPHAMIDE
     Indication: Anaplastic large cell lymphoma T- and null-cell types
  10. SEMUSTINE [Concomitant]
     Active Substance: SEMUSTINE
     Indication: Anaplastic large cell lymphoma T- and null-cell types

REACTIONS (3)
  - Abdominal infection [Recovering/Resolving]
  - Stomatitis [Recovering/Resolving]
  - Drug ineffective [Unknown]
